FAERS Safety Report 5482172-3 (Version None)
Quarter: 2007Q4

REPORT INFORMATION
  Report Type: 
  Country: None (occurrence: None)
  Receive Date: 20071005
  Receipt Date: 20070928
  Transmission Date: 20080405
  Serious: Yes (Disabling, Other)
  Sender: FDA-Public Use
  Company Number: 2007SP016268

PATIENT
  Age: 53 Year
  Sex: Female

DRUGS (3)
  1. INTRON A [Suspect]
     Indication: RENAL CELL CARCINOMA STAGE UNSPECIFIED
     Dosage: 3 MIU; BIW; IM; 10 MIU; QW; IM
     Route: 030
     Dates: start: 20040420
  2. INTRON A [Suspect]
     Indication: RENAL CELL CARCINOMA STAGE UNSPECIFIED
     Dosage: 3 MIU; BIW; IM; 10 MIU; QW; IM
     Route: 030
     Dates: start: 20070101
  3. IMUNACE [Concomitant]

REACTIONS (11)
  - BLINDNESS UNILATERAL [None]
  - BREAST CANCER [None]
  - CEREBRAL INFARCTION [None]
  - METASTASES TO CENTRAL NERVOUS SYSTEM [None]
  - METASTASES TO LIVER [None]
  - METASTASES TO LUNG [None]
  - METASTASES TO LYMPH NODES [None]
  - METASTASES TO OVARY [None]
  - REFUSAL OF TREATMENT BY PATIENT [None]
  - THROMBOTIC STROKE [None]
  - VISUAL ACUITY REDUCED [None]
